FAERS Safety Report 4910541-6 (Version None)
Quarter: 2006Q1

REPORT INFORMATION
  Report Type: 
  Country: None (occurrence: None)
  Receive Date: 20060214
  Receipt Date: 20060131
  Transmission Date: 20060701
  Serious: Yes (Hospitalization)
  Sender: FDA-Public Use
  Company Number: JP-ROCHE-435022

PATIENT
  Age: 20 Year
  Sex: Male

DRUGS (2)
  1. TAMIFLU [Suspect]
     Indication: INFLUENZA
     Route: 048
     Dates: start: 20060121, end: 20060124
  2. ANTITUSSIVE NOS [Concomitant]
     Dosage: REPORTED AS: ANTITUSSIVES AND EXPECTORANTS.

REACTIONS (1)
  - MANIA [None]
